FAERS Safety Report 20219439 (Version 2)
Quarter: 2022Q1

REPORT INFORMATION
  Report Type: Report from Study
  Country: GB (occurrence: GB)
  Receive Date: 20211222
  Receipt Date: 20220125
  Transmission Date: 20220423
  Serious: Yes (Hospitalization, Other)
  Sender: FDA-Public Use
  Company Number: GB-BRISTOL-MYERS SQUIBB COMPANY-BMS-2021-137920

PATIENT
  Age: 73 Year
  Sex: Male

DRUGS (1)
  1. ABATACEPT [Suspect]
     Active Substance: ABATACEPT
     Indication: Rheumatoid arthritis
     Dosage: 125 MILLIGRAM, QWK
     Route: 058
     Dates: start: 20161027

REACTIONS (4)
  - Hypoacusis [Unknown]
  - Fall [Unknown]
  - Femur fracture [Unknown]
  - Confusional state [Unknown]

NARRATIVE: CASE EVENT DATE: 20211201
